FAERS Safety Report 7564833-5 (Version None)
Quarter: 2011Q2

REPORT INFORMATION
  Report Type: 
  Country: None (occurrence: None)
  Receive Date: 20110622
  Receipt Date: 20110209
  Transmission Date: 20111010
  Serious: Yes (Other)
  Sender: FDA-Public Use
  Company Number: US-MYLANLABS-2010S1023474

PATIENT
  Age: 21 Year
  Sex: Female

DRUGS (9)
  1. CLOZAPINE [Suspect]
     Indication: AFFECTIVE DISORDER
     Route: 048
     Dates: end: 20110119
  2. HALDOL [Concomitant]
  3. DEPAKOTE [Concomitant]
  4. PROZAC [Concomitant]
  5. RITALIN [Concomitant]
  6. CLOZAPINE [Suspect]
     Route: 048
     Dates: end: 20110119
  7. ATIVAN [Concomitant]
  8. COGENTIN [Concomitant]
  9. TOFRANIL [Concomitant]

REACTIONS (1)
  - GRANULOCYTOPENIA [None]
